FAERS Safety Report 9484973 (Version 1)
Quarter: 2013Q3

REPORT INFORMATION
  Report Type: Spontaneous
  Country: US (occurrence: US)
  Receive Date: 20130828
  Receipt Date: 20130828
  Transmission Date: 20140515
  Serious: No
  Sender: FDA-Public Use
  Company Number: US-ABBOTT-13P-163-1095995-00

PATIENT
  Sex: Male
  Weight: 99.88 kg

DRUGS (2)
  1. ANDROGEL [Suspect]
     Indication: BLOOD TESTOSTERONE DECREASED
     Dates: start: 20121231
  2. LISINOPRIL/HCTZ [Concomitant]
     Indication: HYPERTENSION

REACTIONS (1)
  - Libido decreased [Not Recovered/Not Resolved]
